FAERS Safety Report 18004478 (Version 1)
Quarter: 2020Q3

REPORT INFORMATION
  Report Type: Spontaneous
  Country: MX (occurrence: MX)
  Receive Date: 20200709
  Receipt Date: 20200709
  Transmission Date: 20201103
  Serious: Yes (Death, Other)
  Sender: FDA-Public Use
  Company Number: MX-009507513-2007MEX003428

PATIENT
  Age: 63 Year
  Sex: Male

DRUGS (1)
  1. KEYTRUDA [Suspect]
     Active Substance: PEMBROLIZUMAB
     Indication: TRANSITIONAL CELL CARCINOMA
     Dosage: 200 MG EVERY 21 DAYS
     Dates: start: 20170822

REACTIONS (6)
  - Malignant neoplasm progression [Unknown]
  - Pneumonia [Unknown]
  - Therapy partial responder [Unknown]
  - Death [Fatal]
  - Malignant gastrointestinal obstruction [Unknown]
  - Pruritus [Unknown]

NARRATIVE: CASE EVENT DATE: 20180108
